FAERS Safety Report 6765205-3 (Version None)
Quarter: 2010Q2

REPORT INFORMATION
  Report Type: 
  Country: None (occurrence: None)
  Receive Date: 20100610
  Receipt Date: 20100610
  Transmission Date: 20101027
  Serious: No
  Sender: FDA-Public Use
  Company Number: None

PATIENT
  Age: 60 Year
  Sex: Male
  Weight: 86.1834 kg

DRUGS (4)
  1. SIMVASTATIN [Suspect]
     Indication: HYPERCHOLESTEROLAEMIA
     Dosage: 20 QD PO
     Route: 048
     Dates: start: 20090915, end: 20100601
  2. NIACIN [Concomitant]
  3. HCTZ [Concomitant]
  4. METOPROLOL TARTRATE [Concomitant]

REACTIONS (1)
  - TENDONITIS [None]
